FAERS Safety Report 8106552-2 (Version None)
Quarter: 2012Q1

REPORT INFORMATION
  Report Type: 
  Country: None (occurrence: None)
  Receive Date: 20120202
  Receipt Date: 20120125
  Transmission Date: 20120608
  Serious: Yes (Hospitalization)
  Sender: FDA-Public Use
  Company Number: US-BAYER-2011-042218

PATIENT
  Age: 45 Year
  Sex: Female
  Weight: 94 kg

DRUGS (8)
  1. PENICILLIN VK [Concomitant]
  2. EFFEXOR [Concomitant]
  3. YASMIN [Suspect]
     Indication: CONTRACEPTION
     Dosage: UNK
     Dates: start: 20041115, end: 20051201
  4. ALPRAZOLAM [Concomitant]
  5. YASMIN [Suspect]
     Indication: GENITAL HAEMORRHAGE
  6. OXYCODONE HCL AND ACETAMINOPHEN [Concomitant]
  7. ORPHENADRINE CITRATE [Concomitant]
  8. METHYLPREDNISOLONE [Concomitant]

REACTIONS (8)
  - OEDEMA PERIPHERAL [None]
  - PAIN [None]
  - ANXIETY [None]
  - PAIN IN EXTREMITY [None]
  - GENERAL PHYSICAL HEALTH DETERIORATION [None]
  - DEEP VEIN THROMBOSIS [None]
  - EMOTIONAL DISTRESS [None]
  - HYPOAESTHESIA [None]
